FAERS Safety Report 8260851-2 (Version None)
Quarter: 2012Q2

REPORT INFORMATION
  Report Type: 
  Country: None (occurrence: None)
  Receive Date: 20120402
  Receipt Date: 20120320
  Transmission Date: 20120825
  Serious: Yes (Other)
  Sender: FDA-Public Use
  Company Number: WAES 1203USA02363

PATIENT
  Age: 72 Year
  Sex: Female
  Weight: 75.7507 kg

DRUGS (18)
  1. CHONDROITIN SULFATE SODIUM [Concomitant]
  2. OMEGA-3 MARINE TRIGLYCERIDES [Concomitant]
  3. FLAXSEED [Concomitant]
  4. FUROSEMIDE [Concomitant]
  5. HYDROCODONE BITARTRATE [Concomitant]
  6. METOPROLOL TARTRATE [Concomitant]
  7. ERGOCALCIFEROL [Concomitant]
  8. POTASSIUIM (UNSPECIFIED) [Concomitant]
  9. VITAMIN B COMPLEX CAP [Concomitant]
  10. ACTONEL [Suspect]
     Indication: PRODUCT USED FOR UNKNOWN INDICATION
     Dosage: UNK
  11. FOSAMAX [Suspect]
     Indication: PRODUCT USED FOR UNKNOWN INDICATION
     Dosage: PO
     Route: 048
  12. ALPRAZOLAM [Concomitant]
  13. FOLIC ACID [Concomitant]
  14. ZINC (UNSPECIFIED) [Concomitant]
  15. HUMIRA [Suspect]
     Indication: RHEUMATOID ARTHRITIS
     Dosage: 40 MG, UNK
     Dates: start: 20020101, end: 20070101
  16. PREDNISONE [Concomitant]
  17. ASCORBIC ACID + BIOFLAVONOIDS [Concomitant]
  18. TIMOLOL MALEATE [Concomitant]

REACTIONS (8)
  - INJECTION SITE PAIN [None]
  - PAIN [None]
  - DRUG HYPERSENSITIVITY [None]
  - OSTEOPOROSIS [None]
  - INFECTION [None]
  - CEREBROVASCULAR ACCIDENT [None]
  - IMPAIRED HEALING [None]
  - WOUND [None]
